FAERS Safety Report 13517820 (Version 1)
Quarter: 2017Q2

REPORT INFORMATION
  Report Type: Spontaneous
  Country: US (occurrence: US)
  Receive Date: 20170505
  Receipt Date: 20170505
  Transmission Date: 20170830
  Serious: Yes (Other)
  Sender: FDA-Public Use
  Company Number: US-GLAXOSMITHKLINE-US2016199650

PATIENT
  Sex: Female

DRUGS (1)
  1. TUMS ULTRA [Suspect]
     Active Substance: CALCIUM CARBONATE
     Indication: PRODUCT USED FOR UNKNOWN INDICATION
     Dosage: UNK (25-30 OR MORE)

REACTIONS (5)
  - Product formulation issue [None]
  - Product quality issue [None]
  - Overdose [Unknown]
  - Obsessive thoughts [Unknown]
  - Drug use disorder [Unknown]
